FAERS Safety Report 7010735-2 (Version None)
Quarter: 2010Q3

REPORT INFORMATION
  Report Type: 
  Country: None (occurrence: None)
  Receive Date: 20100923
  Receipt Date: 20100920
  Transmission Date: 20110219
  Serious: No
  Sender: FDA-Public Use
  Company Number: US-PFIZER INC-2009242551

PATIENT
  Sex: Male
  Weight: 50 kg

DRUGS (1)
  1. DIFLUCAN [Suspect]
     Indication: CANDIDIASIS
     Dosage: 100 MG, 1X/DAY
     Route: 048

REACTIONS (6)
  - DRUG INEFFECTIVE [None]
  - FLATULENCE [None]
  - INCREASED APPETITE [None]
  - OSTEOPOROSIS [None]
  - PAIN [None]
  - WEIGHT INCREASED [None]
